FAERS Safety Report 4932912-4 (Version None)
Quarter: 2006Q1

REPORT INFORMATION
  Report Type: 
  Country: None (occurrence: None)
  Receive Date: 20060302
  Receipt Date: 20060302
  Transmission Date: 20060701
  Serious: Yes (Disabling)
  Sender: FDA-Public Use
  Company Number: None

PATIENT
  Sex: Male
  Weight: 113.4 kg

DRUGS (1)
  1. PIPERACILLIN [Suspect]
     Indication: OSTEOMYELITIS
     Dosage: 4 GRAMS Q8HR IV
     Route: 042
     Dates: start: 20060206, end: 20060223

REACTIONS (7)
  - BLOOD CREATININE INCREASED [None]
  - BODY TEMPERATURE INCREASED [None]
  - CHILLS [None]
  - MALAISE [None]
  - REFUSAL OF TREATMENT BY PATIENT [None]
  - RENAL FAILURE ACUTE [None]
  - VOMITING [None]
